FAERS Safety Report 10881588 (Version 1)
Quarter: 2015Q1

REPORT INFORMATION
  Report Type: Spontaneous
  Country: US (occurrence: None)
  Receive Date: 20150225
  Receipt Date: 20150225
  Transmission Date: 20150721
  Serious: Yes (Hospitalization)
  Sender: FDA-Public Use
  Company Number: None

PATIENT
  Age: 68 Year
  Sex: Female
  Weight: 50.91 kg

DRUGS (1)
  1. TAXOL [Suspect]
     Active Substance: PACLITAXEL
     Dates: end: 20140801

REACTIONS (12)
  - Application site pain [None]
  - Gastrointestinal stoma complication [None]
  - Pyrexia [None]
  - Fungal test positive [None]
  - Malaise [None]
  - Medical device site reaction [None]
  - Application site erythema [None]
  - Nausea [None]
  - Diarrhoea [None]
  - Enterococcus test positive [None]
  - Fatigue [None]
  - Application site warmth [None]

NARRATIVE: CASE EVENT DATE: 20140802
